FAERS Safety Report 7418937-8 (Version None)
Quarter: 2011Q2

REPORT INFORMATION
  Report Type: 
  Country: None (occurrence: None)
  Receive Date: 20110415
  Receipt Date: 20110404
  Transmission Date: 20111010
  Serious: Yes (Hospitalization, Other)
  Sender: FDA-Public Use
  Company Number: US-AMGEN-USASP2011017755

PATIENT
  Age: 54 Year
  Sex: Female

DRUGS (5)
  1. ARANESP [Suspect]
     Indication: HAEMOGLOBIN DECREASED
  2. ENBREL [Suspect]
     Indication: FIBROMYALGIA
  3. TREXALL [Concomitant]
     Dosage: 1 MG, QWK
     Dates: start: 20080101
  4. ENBREL [Suspect]
     Indication: SYSTEMIC LUPUS ERYTHEMATOSUS
  5. ENBREL [Suspect]
     Indication: RHEUMATOID ARTHRITIS
     Dosage: 50 MG, QWK
     Dates: start: 20090901

REACTIONS (12)
  - ATRIAL FIBRILLATION [None]
  - BLOOD TEST ABNORMAL [None]
  - ORTHOSTATIC HYPOTENSION [None]
  - STAPHYLOCOCCAL INFECTION [None]
  - POST PROCEDURAL INFECTION [None]
  - POST PROCEDURAL COMPLICATION [None]
  - TRIGGER FINGER [None]
  - HAEMOGLOBIN INCREASED [None]
  - IDIOPATHIC THROMBOCYTOPENIC PURPURA [None]
  - OSTEONECROSIS [None]
  - SEPSIS [None]
  - RHEUMATOID ARTHRITIS [None]
